FAERS Safety Report 10174465 (Version 3)
Quarter: 2014Q3

REPORT INFORMATION
  Report Type: Report from Study
  Country: US (occurrence: US)
  Receive Date: 20140515
  Receipt Date: 20140917
  Transmission Date: 20150326
  Serious: Yes (Hospitalization, Disabling)
  Sender: FDA-Public Use
  Company Number: US-SA-2013SA107353

PATIENT
  Age: 55 Year
  Sex: Female

DRUGS (2)
  1. AUBAGIO [Suspect]
     Active Substance: TERIFLUNOMIDE
     Indication: MULTIPLE SCLEROSIS
     Route: 048
     Dates: start: 20140131
  2. AUBAGIO [Suspect]
     Active Substance: TERIFLUNOMIDE
     Indication: MULTIPLE SCLEROSIS
     Route: 048
     Dates: start: 20121214

REACTIONS (17)
  - Neck pain [Recovering/Resolving]
  - Alopecia [Recovered/Resolved]
  - Depression [Unknown]
  - Malaise [Not Recovered/Not Resolved]
  - Generalised anxiety disorder [Unknown]
  - Diarrhoea [Unknown]
  - Temperature intolerance [Recovered/Resolved]
  - Muscle spasms [Unknown]
  - Fatigue [Unknown]
  - Multiple sclerosis relapse [Recovering/Resolving]
  - Back pain [Recovering/Resolving]
  - Mass [Not Recovered/Not Resolved]
  - Gait disturbance [Not Recovered/Not Resolved]
  - Spinal pain [Recovered/Resolved]
  - Muscular weakness [Recovering/Resolving]
  - Blood triglycerides increased [Recovered/Resolved]
  - Nausea [Unknown]
